FAERS Safety Report 4659618-3 (Version None)
Quarter: 2005Q2

REPORT INFORMATION
  Report Type: 
  Country: None (occurrence: None)
  Receive Date: 20050411
  Receipt Date: 20050225
  Transmission Date: 20051028
  Serious: Yes (Other)
  Sender: FDA-Public Use
  Company Number: 396894

PATIENT
  Age: 38 Year
  Sex: Male

DRUGS (1)
  1. FUZEON [Suspect]

REACTIONS (5)
  - ERYTHEMA [None]
  - FEELING HOT [None]
  - INFUSION SITE ERYTHEMA [None]
  - INFUSION SITE WARMTH [None]
  - INJECTION SITE REACTION [None]
